FAERS Safety Report 20178037 (Version 1)
Quarter: 2021Q4

REPORT INFORMATION
  Report Type: Spontaneous
  Country: HU (occurrence: HU)
  Receive Date: 20211213
  Receipt Date: 20211213
  Transmission Date: 20220303
  Serious: Yes (Hospitalization)
  Sender: FDA-Public Use
  Company Number: HU-ELI_LILLY_AND_COMPANY-HU202112001253

PATIENT
  Age: 78 Year

DRUGS (2)
  1. TRULICITY [Suspect]
     Active Substance: DULAGLUTIDE
     Indication: Product used for unknown indication
     Dosage: 1.5 MG, WEEKLY (1/W)
     Route: 058
     Dates: start: 202105
  2. GLIQUIDONE [Concomitant]
     Active Substance: GLIQUIDONE
     Indication: Diabetes mellitus
     Dosage: 60 MG, DAILY

REACTIONS (2)
  - Infarction [Unknown]
  - Renal impairment [Unknown]

NARRATIVE: CASE EVENT DATE: 20210901
